FAERS Safety Report 4716765-5 (Version None)
Quarter: 2005Q3

REPORT INFORMATION
  Report Type: 
  Country: None (occurrence: None)
  Receive Date: 20050714
  Receipt Date: 20050701
  Transmission Date: 20060218
  Serious: Yes (Other)
  Sender: FDA-Public Use
  Company Number: 2005097391

PATIENT
  Sex: Male
  Weight: 81.6475 kg

DRUGS (2)
  1. VIAGRA [Suspect]
     Indication: ERECTILE DYSFUNCTION
     Dosage: (50 MG, AS NECESSARY), ORAL
     Route: 048
     Dates: start: 20040101
  2. VITAMINS [Concomitant]

REACTIONS (2)
  - PROSTATE CANCER [None]
  - WRONG TECHNIQUE IN DRUG USAGE PROCESS [None]
